FAERS Safety Report 6509511-6 (Version None)
Quarter: 2009Q4

REPORT INFORMATION
  Report Type: 
  Country: None (occurrence: None)
  Receive Date: 20091222
  Receipt Date: 20091214
  Transmission Date: 20100525
  Serious: Yes (Other)
  Sender: FDA-Public Use
  Company Number: DE-ELI_LILLY_AND_COMPANY-DE200912002991

PATIENT
  Age: 69 Year
  Sex: Male

DRUGS (7)
  1. GEMZAR [Suspect]
     Indication: PANCREATIC CARCINOMA
     Dosage: UNK, UNKNOWN
     Route: 065
  2. MARCUMAR [Concomitant]
  3. ASPIRIN [Concomitant]
  4. APIDRA [Concomitant]
  5. METOPROLOL TARTRATE [Concomitant]
  6. PRAVASTATIN [Concomitant]
  7. NIFEDIPINE [Concomitant]

REACTIONS (1)
  - RHABDOMYOLYSIS [None]
